FAERS Safety Report 7107717-9 (Version None)
Quarter: 2010Q4

REPORT INFORMATION
  Report Type: 
  Country: None (occurrence: None)
  Receive Date: 20101117
  Receipt Date: 20101112
  Transmission Date: 20110411
  Serious: Yes (Other)
  Sender: FDA-Public Use
  Company Number: GB-BRISTOL-MYERS SQUIBB COMPANY-15381874

PATIENT
  Age: 69 Year
  Sex: Male

DRUGS (13)
  1. ATENOLOL [Suspect]
  2. PRAVASTATIN SODIUM [Suspect]
  3. ISOSORBIDE MONONITRATE [Suspect]
  4. FOLIC ACID [Suspect]
     Dosage: 15MG 2 DAYS AFTER METHOTREXATE
  5. METHOTREXATE [Suspect]
  6. NICORANDIL [Suspect]
  7. CANDESARTAN CILEXETIL [Suspect]
  8. FLURBIPROFEN [Suspect]
  9. LANSOPRAZOLE [Suspect]
  10. SIMVASTATIN [Suspect]
  11. ASPIRIN [Concomitant]
  12. CALCIPOTRIOL [Concomitant]
     Dosage: CALCIPOTRIOL 50MCG/G OINTMENT FORM:OINTMENT
  13. GUAR GUM [Concomitant]
     Dosage: GUAR HYDROXYPROPYLTRIMONIUM 0.2% EYE DROPS
     Route: 031

REACTIONS (1)
  - ABNORMAL DREAMS [None]
